FAERS Safety Report 5453423-6 (Version None)
Quarter: 2007Q3

REPORT INFORMATION
  Report Type: 
  Country: None (occurrence: None)
  Receive Date: 20070913
  Receipt Date: 20070828
  Transmission Date: 20080115
  Serious: Yes (Death)
  Sender: FDA-Public Use
  Company Number: 018163

PATIENT
  Age: 5 Year
  Sex: Female

DRUGS (8)
  1. METHOTREXATE [Suspect]
     Indication: RETINOBLASTOMA
     Dosage: 132 MG/M2, 11 CYCLES, INTRATHECAL
     Route: 037
  2. CISPLATIN [Suspect]
     Indication: RETINOBLASTOMA
     Dosage: 540 MG/M2, 6 CYCLES,
  3. DOXORUBICIN HCL [Suspect]
     Dosage: 10 MG/KG, 5 CYCLES,
  4. CYCLOPHOSPHAMIDE [Suspect]
     Indication: RETINOBLASTOMA
     Dosage: 150 MG/M2, 5 CYCLES,
  5. IFOSFAMIDE [Suspect]
     Indication: RETINOBLASTOMA
     Dosage: 54 MG/M2, 6 CYCLES,
  6. ETOPOSIDE [Suspect]
     Indication: RETINOBLASTOMA
     Dosage: 2700 MG/M2, 6 CYCLES,
  7. TENIPOSIDE(TENIPOSIDE) [Suspect]
     Indication: RETINOBLASTOMA
     Dosage: 600 MG/M2, 6 CYCLES,
  8. VINCRISTINE [Suspect]
     Indication: RETINOBLASTOMA
     Dosage: 0.25 MG/M2, 5 CYCLES,

REACTIONS (1)
  - ACUTE MYELOID LEUKAEMIA [None]
